FAERS Safety Report 8332367-6 (Version None)
Quarter: 2012Q1

REPORT INFORMATION
  Report Type: 
  Country: None (occurrence: None)
  Receive Date: 20120315
  Receipt Date: 20110615
  Transmission Date: 20120608
  Serious: No
  Sender: FDA-Public Use
  Company Number: PHHY2011US51194

PATIENT
  Age: 17 Year
  Sex: Female
  Weight: 74.8 kg

DRUGS (1)
  1. GILENYA [Suspect]
     Indication: MULTIPLE SCLEROSIS
     Dosage: 0.5 MG, QD, ORAL
     Route: 048
     Dates: start: 20110603

REACTIONS (9)
  - OCULAR HYPERAEMIA [None]
  - HEADACHE [None]
  - PARAESTHESIA [None]
  - ARTHRALGIA [None]
  - VISION BLURRED [None]
  - OCULAR DISCOMFORT [None]
  - HYPOAESTHESIA [None]
  - TREMOR [None]
  - EYE IRRITATION [None]
